FAERS Safety Report 9076965 (Version 1)
Quarter: 2013Q1

REPORT INFORMATION
  Report Type: Spontaneous
  Country: PT (occurrence: PT)
  Receive Date: 20130130
  Receipt Date: 20130130
  Transmission Date: 20140127
  Serious: Yes (Other)
  Sender: FDA-Public Use
  Company Number: PT-JNJFOC-20130112073

PATIENT
  Age: 57 Year
  Sex: Male

DRUGS (3)
  1. PREZISTA [Suspect]
     Indication: PATHOGEN RESISTANCE
     Route: 048
  2. INTELENCE [Suspect]
     Indication: PATHOGEN RESISTANCE
     Route: 048
  3. ANTIRETROVIRALS [Suspect]
     Indication: PATHOGEN RESISTANCE
     Route: 065

REACTIONS (2)
  - Generalised oedema [Recovering/Resolving]
  - Pruritus [Recovering/Resolving]
